APPROVED DRUG PRODUCT: BENZPHETAMINE HYDROCHLORIDE
Active Ingredient: BENZPHETAMINE HYDROCHLORIDE
Strength: 50MG
Dosage Form/Route: TABLET;ORAL
Application: A202061 | Product #001
Applicant: AVET LIFESCIENCES LTD
Approved: Jan 27, 2012 | RLD: No | RS: No | Type: DISCN